FAERS Safety Report 9844847 (Version 1)
Quarter: 2014Q1

REPORT INFORMATION
  Report Type: Spontaneous
  Country: US (occurrence: US)
  Receive Date: 20140127
  Receipt Date: 20140127
  Transmission Date: 20141002
  Serious: Yes (Hospitalization)
  Sender: FDA-Public Use
  Company Number: US-SA-2014SA010174

PATIENT
  Age: 58 Year
  Sex: Female

DRUGS (1)
  1. LANTUS [Suspect]
     Indication: DIABETES MELLITUS
     Dosage: DOSE:65 UNIT(S)
     Route: 058

REACTIONS (3)
  - Ear pain [Recovered/Resolved]
  - Swelling face [Recovered/Resolved]
  - Pyrexia [Recovered/Resolved]
